FAERS Safety Report 6007134-9 (Version None)
Quarter: 2008Q4

REPORT INFORMATION
  Report Type: 
  Country: None (occurrence: None)
  Receive Date: 20081217
  Receipt Date: 20080220
  Transmission Date: 20090506
  Serious: No
  Sender: FDA-Public Use
  Company Number: US-ASTRAZENECA-2008UW01874

PATIENT
  Age: 20288 Day
  Sex: Female
  Weight: 90.7 kg

DRUGS (6)
  1. CRESTOR [Suspect]
     Indication: BLOOD CHOLESTEROL INCREASED
     Route: 048
     Dates: start: 20071231
  2. ATENOLOL [Concomitant]
     Route: 048
  3. PREMARIN [Concomitant]
     Route: 048
  4. PROMETRIUM [Concomitant]
     Route: 048
  5. TRIAMTERENE [Concomitant]
  6. DIAZIDE [Concomitant]
     Route: 048

REACTIONS (1)
  - VAGINAL HAEMORRHAGE [None]
